FAERS Safety Report 9047062 (Version 1)
Quarter: 2013Q1

REPORT INFORMATION
  Report Type: Spontaneous
  Country: GR (occurrence: GR)
  Receive Date: 20130204
  Receipt Date: 20130204
  Transmission Date: 20140127
  Serious: Yes (Other)
  Sender: FDA-Public Use
  Company Number: GR-JNJFOC-20130112802

PATIENT
  Age: 35 Year
  Sex: Female

DRUGS (5)
  1. STELARA [Suspect]
     Indication: PSORIASIS
     Dosage: WEEK 16
     Route: 058
  2. STELARA [Suspect]
     Indication: PSORIASIS
     Dosage: WEEK 4
     Route: 058
  3. STELARA [Suspect]
     Indication: PSORIASIS
     Dosage: WEEK 0
     Route: 058
  4. STELARA [Suspect]
     Indication: PSORIASIS
     Dosage: WEEK 28
     Route: 058
  5. STELARA [Suspect]
     Indication: PSORIASIS
     Dosage: WEEK 40
     Route: 058

REACTIONS (2)
  - Abortion spontaneous [Unknown]
  - Exposure during pregnancy [Recovered/Resolved]
